FAERS Safety Report 25993952 (Version 1)
Quarter: 2025Q4

REPORT INFORMATION
  Report Type: Spontaneous
  Country: CN (occurrence: CN)
  Receive Date: 20251104
  Receipt Date: 20251104
  Transmission Date: 20260118
  Serious: Yes (Life-Threatening, Hospitalization, Disabling)
  Sender: ACCORD
  Company Number: CN-Accord-510725

PATIENT
  Age: 59 Year
  Sex: Female

DRUGS (2)
  1. CISPLATIN [Suspect]
     Active Substance: CISPLATIN
     Indication: Gallbladder adenocarcinoma
     Dosage: 25 MG/M2 ADMINISTERED ON DAYS 1 AND 8 OF A THREE-WEEK CYCLE
     Dates: start: 20200402, end: 202004
  2. GEMCITABINE [Suspect]
     Active Substance: GEMCITABINE
     Indication: Gallbladder adenocarcinoma
     Dosage: AT 1000 MG/M2 ADMINISTERED ON DAYS 1 AND 8 OF A THREE-WEEK CYCLE
     Dates: start: 20200402, end: 202004

REACTIONS (2)
  - Stevens-Johnson syndrome [Recovering/Resolving]
  - Gastrointestinal obstruction [Recovering/Resolving]

NARRATIVE: CASE EVENT DATE: 20200401
